FAERS Safety Report 8437899-8 (Version None)
Quarter: 2012Q2

REPORT INFORMATION
  Report Type: 
  Country: None (occurrence: None)
  Receive Date: 20120614
  Receipt Date: 20120515
  Transmission Date: 20120825
  Serious: No
  Sender: FDA-Public Use
  Company Number: US-AMGEN-USASP2012030603

PATIENT
  Age: 79 Year
  Sex: Female

DRUGS (7)
  1. PROLIA [Suspect]
     Indication: OSTEOPOROSIS POSTMENOPAUSAL
     Dosage: 60 MG, Q6MO
     Dates: start: 20120508
  2. ASPIRIN [Concomitant]
  3. SINGULAIR [Concomitant]
  4. VITAMIN D [Concomitant]
  5. PERCOCET [Concomitant]
  6. CENTRUM SILVER                     /01292501/ [Concomitant]
  7. CALCIUM [Concomitant]

REACTIONS (2)
  - MYALGIA [None]
  - MUSCULAR WEAKNESS [None]
